FAERS Safety Report 6105863-X (Version None)
Quarter: 2009Q1

REPORT INFORMATION
  Report Type: 
  Country: None (occurrence: None)
  Receive Date: 20090306
  Receipt Date: 20090227
  Transmission Date: 20090719
  Serious: Yes (Disabling)
  Sender: FDA-Public Use
  Company Number: US-MERCK-0810USA05277

PATIENT
  Age: 64 Year
  Sex: Female

DRUGS (2)
  1. FOSAMAX [Suspect]
     Indication: OSTEOPOROSIS
     Route: 048
     Dates: start: 20001113, end: 20030121
  2. ACTONEL [Suspect]
     Indication: OSTEOPOROSIS
     Route: 048
     Dates: start: 20040201, end: 20070829

REACTIONS (6)
  - CONTUSION [None]
  - FALL [None]
  - JAW DISORDER [None]
  - OSTEONECROSIS [None]
  - PAIN IN EXTREMITY [None]
  - RESORPTION BONE INCREASED [None]
